FAERS Safety Report 8493735 (Version 2)
Quarter: 2012Q4

REPORT INFORMATION
  Report Type: Spontaneous
  Country: CO (occurrence: None)
  Receive Date: 20120328
  Receipt Date: 20120821
  Transmission Date: 20130627
  Serious: Yes (Death, Hospitalization, Other)
  Sender: FDA-Public Use
  Company Number: 2012HGS-003357

PATIENT
  Age: 34 Year
  Sex: Female
  Weight: 61.3 kg

DRUGS (8)
  1. BELIMUMAB [Suspect]
     Indication: SYSTEMIC LUPUS ERYTHEMATOSUS
     Dosage: 10 MG/KG, 1 IN 28 D, INTRAVENOUS DRIP
     Route: 041
     Dates: start: 20081229
  2. ENALAPRIL MALEATE [Concomitant]
  3. PRENISOLONE (PREDNISOLONE) (PREDNISOLONE) [Concomitant]
  4. CALCITRIOL (CALCITRIOL) (CALCITRIOL) [Concomitant]
  5. ACETAMINOPHEN [Concomitant]
  6. CALCIUM CARBONATE (CALCIUM CARBONATE) (CALCIUM CARBONATE) [Concomitant]
  7. OMEPRAZOLE [Concomitant]
  8. SILDENAFIL (SILDENAFIL) (SILDENAFIL) [Concomitant]

REACTIONS (17)
  - Cardiogenic shock [None]
  - Tibia fracture [None]
  - Foot fracture [None]
  - Injury [None]
  - Fall [None]
  - Lower limb fracture [None]
  - Oxygen saturation decreased [None]
  - Tachycardia [None]
  - Metabolic acidosis [None]
  - Thrombocytopenia [None]
  - Respiratory distress [None]
  - Haemolytic anaemia [None]
  - Procedural hypotension [None]
  - Procedural complication [None]
  - Hypotension [None]
  - Bradycardia [None]
  - Cor pulmonale [None]
